FAERS Safety Report 6283989-8 (Version None)
Quarter: 2009Q3

REPORT INFORMATION
  Report Type: 
  Country: None (occurrence: None)
  Receive Date: 20090722
  Receipt Date: 20090715
  Transmission Date: 20100115
  Serious: Yes (Life-Threatening, Other)
  Sender: FDA-Public Use
  Company Number: 2009US002781

PATIENT
  Age: 25 Year
  Sex: Male

DRUGS (16)
  1. AMBISOME [Suspect]
     Indication: DRUG USE FOR UNKNOWN INDICATION
     Dosage: IV NOS; 180 MG, IV NOS
     Route: 042
     Dates: start: 20090422
  2. AMBISOME [Suspect]
     Indication: DRUG USE FOR UNKNOWN INDICATION
     Dosage: IV NOS; 180 MG, IV NOS
     Route: 042
     Dates: start: 20090519
  3. ANCOTIL (FLUCYTOSINE) [Concomitant]
  4. HEPARIN [Concomitant]
  5. INEXIUM (ESOMEPRAZOLE SODIUM) [Concomitant]
  6. DAFALGAN [Concomitant]
  7. TARDYFERON (FERROUS SULFATE) [Concomitant]
  8. ALDACTONE [Concomitant]
  9. COLCHIMAX (DICYCLOVERINE HYDROCHLORIDE, COLCHICINE) [Concomitant]
  10. ALPRAZOLAM [Concomitant]
  11. POTASSIUM CHLORIDE [Concomitant]
  12. LASIX [Concomitant]
  13. CORDARONE [Concomitant]
  14. BISOPROLOL FUMARATE [Concomitant]
  15. ACUPAN [Concomitant]
  16. FLUCONAZOLE [Concomitant]

REACTIONS (10)
  - ARRHYTHMIA [None]
  - CARDIAC FAILURE [None]
  - CARDIO-RESPIRATORY ARREST [None]
  - CLONIC CONVULSION [None]
  - HEPATIC INFARCTION [None]
  - HYPOKALAEMIA [None]
  - PERICARDIAL EFFUSION [None]
  - PLEURAL EFFUSION [None]
  - RENAL INFARCT [None]
  - SPLENIC INFARCTION [None]
